FAERS Safety Report 24754402 (Version 2)
Quarter: 2025Q1

REPORT INFORMATION
  Report Type: Report from Study
  Country: NL (occurrence: NL)
  Receive Date: 20241219
  Receipt Date: 20250108
  Transmission Date: 20250408
  Serious: Yes (Hospitalization)
  Sender: ALNYLAM PHARMACEUTICALS
  Company Number: NL-ALNYLAM PHARMACEUTICALS, INC.-ALN-2024-007084

PATIENT

DRUGS (1)
  1. OXLUMO [Suspect]
     Active Substance: LUMASIRAN
     Indication: Primary hyperoxaluria
     Route: 065

REACTIONS (1)
  - Ureteroscopy [Unknown]

NARRATIVE: CASE EVENT DATE: 20190101
